FAERS Safety Report 10190506 (Version 1)
Quarter: 2014Q2

REPORT INFORMATION
  Report Type: Spontaneous
  Country: US (occurrence: US)
  Receive Date: 20140522
  Receipt Date: 20140522
  Transmission Date: 20141212
  Serious: Yes (Other)
  Sender: FDA-Public Use
  Company Number: US-SA-2014SA045934

PATIENT
  Age: 72 Year
  Sex: Male

DRUGS (2)
  1. ELOXATIN [Suspect]
     Indication: PANCREATIC CARCINOMA
     Route: 065
     Dates: start: 201403
  2. ELOXATIN [Suspect]
     Indication: PANCREATIC CARCINOMA
     Route: 065
     Dates: start: 201403

REACTIONS (4)
  - Injection site necrosis [Not Recovered/Not Resolved]
  - Extravasation [Not Recovered/Not Resolved]
  - Pain [Not Recovered/Not Resolved]
  - Inflammation [Not Recovered/Not Resolved]
